FAERS Safety Report 5917056-7 (Version None)
Quarter: 2008Q4

REPORT INFORMATION
  Report Type: 
  Country: None (occurrence: None)
  Receive Date: 20081014
  Receipt Date: 20081009
  Transmission Date: 20090506
  Serious: Yes (Other)
  Sender: FDA-Public Use
  Company Number: SE-JNJFOC-20080901776

PATIENT
  Age: 6 Year
  Sex: Male

DRUGS (3)
  1. CONCERTA [Suspect]
  2. CONCERTA [Suspect]
     Indication: DRUG USE FOR UNKNOWN INDICATION
  3. VICKS [Interacting]
     Indication: COUGH
     Route: 048

REACTIONS (4)
  - AGITATION [None]
  - DIPLOPIA [None]
  - DRUG INTERACTION [None]
  - HALLUCINATION [None]
